FAERS Safety Report 7357868-9 (Version None)
Quarter: 2011Q1

REPORT INFORMATION
  Report Type: 
  Country: None (occurrence: None)
  Receive Date: 20110309
  Receipt Date: 20110221
  Transmission Date: 20110831
  Serious: Yes (Hospitalization)
  Sender: FDA-Public Use
  Company Number: 2011MA001606

PATIENT
  Sex: Female

DRUGS (1)
  1. METFORMIN HYDROCHLORIDE [Suspect]
     Indication: DIABETES MELLITUS
     Dosage: ; PO
     Route: 048

REACTIONS (8)
  - HYPOVOLAEMIC SHOCK [None]
  - GASTROENTERITIS [None]
  - TOXICITY TO VARIOUS AGENTS [None]
  - LACTIC ACIDOSIS [None]
  - SEPTIC SHOCK [None]
  - ACUTE PRERENAL FAILURE [None]
  - DRUG LEVEL INCREASED [None]
  - CONTINUOUS HAEMODIAFILTRATION [None]
